FAERS Safety Report 22353895 (Version 7)
Quarter: 2025Q1

REPORT INFORMATION
  Report Type: Report from Study
  Country: JP (occurrence: JP)
  Receive Date: 20230523
  Receipt Date: 20250228
  Transmission Date: 20250409
  Serious: Yes (Hospitalization)
  Sender: ABBVIE
  Company Number: JP-ABBVIE-21K-087-3741161-00

PATIENT
  Age: 83 Year
  Sex: Female

DRUGS (3)
  1. CARBIDOPA\LEVODOPA [Suspect]
     Active Substance: CARBIDOPA\LEVODOPA
     Indication: Parkinson^s disease
     Route: 050
     Dates: start: 20201029
  2. CARBIDOPA\LEVODOPA [Suspect]
     Active Substance: CARBIDOPA\LEVODOPA
     Route: 050
     Dates: start: 20201116, end: 20230925
  3. ROTIGOTINE [Concomitant]
     Active Substance: ROTIGOTINE
     Indication: Parkinson^s disease
     Route: 062

REACTIONS (23)
  - Wound infection bacterial [Recovered/Resolved]
  - Dyskinesia [Unknown]
  - Arthralgia [Unknown]
  - Stoma site discharge [Unknown]
  - Stoma site reaction [Recovered/Resolved]
  - Skin laxity [Unknown]
  - Stoma site discharge [Unknown]
  - Tremor [Unknown]
  - On and off phenomenon [Unknown]
  - Malaise [Unknown]
  - Medical device site erosion [Unknown]
  - Stoma site erythema [Unknown]
  - Stoma site extravasation [Unknown]
  - Gait inability [Unknown]
  - Somnolence [Unknown]
  - Stoma site ulcer [Unknown]
  - Hypoacusis [Unknown]
  - Stoma site inflammation [Recovered/Resolved]
  - Stoma site reaction [Recovering/Resolving]
  - Skin disorder [Unknown]
  - Gastrooesophageal reflux disease [Unknown]
  - Device issue [Unknown]
  - Posture abnormal [Unknown]

NARRATIVE: CASE EVENT DATE: 20210308
